FAERS Safety Report 7166175-9 (Version None)
Quarter: 2010Q4

REPORT INFORMATION
  Report Type: 
  Country: None (occurrence: None)
  Receive Date: 20101203
  Receipt Date: 20101123
  Transmission Date: 20110411
  Serious: Yes (Other)
  Sender: FDA-Public Use
  Company Number: 021976

PATIENT
  Sex: Female

DRUGS (6)
  1. KEPPRA [Suspect]
     Indication: CONVULSION
     Dosage: (4500 MG,3000MG QPM 1500MG QAM ORAL)
     Route: 048
  2. KEPPRA [Suspect]
     Indication: CONVULSION
     Dosage: (INITIAL DOSE 2004 ORAL)
     Route: 048
     Dates: start: 20040101
  3. LISINOPRIL [Concomitant]
  4. LEXAPRO [Concomitant]
  5. FOLIC ACID [Concomitant]
  6. HYDROCODONE BITARTRATE AND ACETAMINOPHEN [Concomitant]

REACTIONS (2)
  - MOVEMENT DISORDER [None]
  - PYREXIA [None]
